FAERS Safety Report 6734203-8 (Version None)
Quarter: 2010Q2

REPORT INFORMATION
  Report Type: 
  Country: None (occurrence: None)
  Receive Date: 20100520
  Receipt Date: 20100519
  Transmission Date: 20101027
  Serious: Yes (Hospitalization, Other)
  Sender: FDA-Public Use
  Company Number: GB-ROXANE LABORATORIES, INC.-2010-RO-00600RO

PATIENT
  Age: 57 Year
  Sex: Female

DRUGS (3)
  1. FLECAINIDE ACETATE [Suspect]
     Indication: ATRIAL FIBRILLATION
  2. METOPROLOL TARTRATE [Suspect]
     Indication: ATRIAL FIBRILLATION
  3. PROPOFOL [Suspect]
     Indication: SEDATION

REACTIONS (2)
  - ATRIAL FLUTTER [None]
  - ATRIOVENTRICULAR BLOCK [None]
